FAERS Safety Report 10419904 (Version 1)
Quarter: 2014Q2

REPORT INFORMATION
  Report Type: Spontaneous
  Country: US (occurrence: None)
  Receive Date: 20140625
  Receipt Date: 20140625
  Transmission Date: 20141212
  Serious: Yes (Other)
  Sender: FDA-Public Use
  Company Number: AUR-APL-2013-05050

PATIENT
  Age: 57 Year
  Sex: Male
  Weight: 136.53 kg

DRUGS (3)
  1. ZOLPIDEM (ZOLPIDEM) [Suspect]
     Indication: INSOMNIA
     Dosage: 1 DOSAGE FORMS (1 DOSAGE FORMS, 1 IN 1 D), ORAL
     Route: 048
     Dates: start: 20130506
  2. METOPROLOL [Concomitant]
  3. LISINOPRIL [Concomitant]

REACTIONS (2)
  - Somnambulism [None]
  - Abnormal behaviour [None]
